FAERS Safety Report 24060617 (Version 1)
Quarter: 2024Q3

REPORT INFORMATION
  Report Type: Spontaneous
  Country: AU (occurrence: AU)
  Receive Date: 20240708
  Receipt Date: 20240708
  Transmission Date: 20241016
  Serious: Yes (Hospitalization)
  Sender: MYLAN
  Company Number: AU-MYLANLABS-2024M1061950

PATIENT
  Sex: Male

DRUGS (1)
  1. CLOZARIL [Suspect]
     Active Substance: CLOZAPINE
     Indication: Schizophrenia
     Dosage: 225 MILLIGRAM, UNK
     Route: 048
     Dates: start: 20231002, end: 20240604

REACTIONS (4)
  - Hospitalisation [Unknown]
  - Schizophrenia [Unknown]
  - Treatment noncompliance [Unknown]
  - Therapy cessation [Unknown]
